FAERS Safety Report 25908052 (Version 1)
Quarter: 2025Q4

REPORT INFORMATION
  Report Type: Spontaneous
  Country: EU (occurrence: EU)
  Receive Date: 20251010
  Receipt Date: 20251010
  Transmission Date: 20260117
  Serious: Yes (Other)
  Sender: AMGEN
  Company Number: EU-AMGEN-POLSP2025197894

PATIENT
  Age: 53 Year
  Sex: Female

DRUGS (3)
  1. NPLATE [Suspect]
     Active Substance: ROMIPLOSTIM
     Indication: Immune thrombocytopenia
     Dosage: 1 MICROGRAM/KILOGRAM, QWK
     Route: 065
     Dates: start: 20230407
  2. NPLATE [Suspect]
     Active Substance: ROMIPLOSTIM
     Dosage: 3 MICROGRAM/KILOGRAM
     Route: 065
  3. NPLATE [Suspect]
     Active Substance: ROMIPLOSTIM
     Dosage: 3 MICROGRAM/KILOGRAM, Q4WK
     Route: 065

REACTIONS (2)
  - Platelet count decreased [Unknown]
  - Infection [Unknown]

NARRATIVE: CASE EVENT DATE: 20240301
